FAERS Safety Report 14406953 (Version 2)
Quarter: 2018Q1

REPORT INFORMATION
  Report Type: Spontaneous
  Country: FR (occurrence: FR)
  Receive Date: 20180118
  Receipt Date: 20180119
  Transmission Date: 20180509
  Serious: Yes (Hospitalization, Other)
  Sender: FDA-Public Use
  Company Number: FR-INCYTE CORPORATION-2018IN000393

PATIENT

DRUGS (6)
  1. CEFTRIAXONE. [Concomitant]
     Active Substance: CEFTRIAXONE
     Indication: SKIN LESION
     Route: 065
  2. JAKAVI [Suspect]
     Active Substance: RUXOLITINIB
     Indication: MYELOFIBROSIS
     Dosage: 30 MG, QD
     Route: 048
     Dates: start: 201611
  3. VIDAZA [Suspect]
     Active Substance: AZACITIDINE
     Indication: MYELOFIBROSIS
     Dosage: 782.25 MG, QMO (100 MG)
     Route: 058
     Dates: start: 20170424
  4. VIDAZA [Suspect]
     Active Substance: AZACITIDINE
     Dosage: 782.25 MG, QMO
     Route: 058
     Dates: start: 20170522, end: 20170711
  5. PYOSTACINE [Concomitant]
     Active Substance: PRISTINAMYCIN
     Indication: SELF-MEDICATION
     Route: 065
  6. JAKAVI [Suspect]
     Active Substance: RUXOLITINIB
     Dosage: 5 MG, QD
     Route: 048
     Dates: start: 20170612

REACTIONS (1)
  - Skin necrosis [Recovered/Resolved]

NARRATIVE: CASE EVENT DATE: 20170529
